FAERS Safety Report 8386445-6 (Version None)
Quarter: 2012Q2

REPORT INFORMATION
  Report Type: 
  Country: None (occurrence: None)
  Receive Date: 20120525
  Receipt Date: 20120524
  Transmission Date: 20120825
  Serious: Yes (Other)
  Sender: FDA-Public Use
  Company Number: US-PFIZER INC-2012126233

PATIENT
  Sex: Female
  Weight: 58.957 kg

DRUGS (1)
  1. SERTRALINE HYDROCHLORIDE [Suspect]
     Indication: DEPRESSION
     Dosage: 12.5 MG, 2X/DAY
     Route: 048
     Dates: start: 20090101

REACTIONS (4)
  - IRON DEFICIENCY [None]
  - VITAMIN D DEFICIENCY [None]
  - DEHYDRATION [None]
  - COELIAC DISEASE [None]
